FAERS Safety Report 4389165-8 (Version None)
Quarter: 2004Q3

REPORT INFORMATION
  Report Type: 
  Country: None (occurrence: None)
  Receive Date: 20040702
  Receipt Date: 20040527
  Transmission Date: 20050211
  Serious: Yes (Hospitalization)
  Sender: FDA-Public Use
  Company Number: 200411196DE

PATIENT
  Age: 44 Year
  Sex: Male
  Weight: 85.7 kg

DRUGS (5)
  1. RILUTEK [Suspect]
     Indication: AMYOTROPHIC LATERAL SCLEROSIS
     Route: 048
     Dates: start: 20040324, end: 20040501
  2. VITAMIN B-12 [Concomitant]
     Route: 048
  3. OPTOVIT [Concomitant]
     Route: 048
  4. ZINK [Concomitant]
     Route: 048
  5. MUCOSOLVAN [Concomitant]
     Route: 048

REACTIONS (8)
  - BACTERIAL INFECTION [None]
  - C-REACTIVE PROTEIN INCREASED [None]
  - CHOLANGITIS ACUTE [None]
  - HEPATITIS CHOLESTATIC [None]
  - HEPATITIS VIRAL [None]
  - HERPES VIRUS INFECTION [None]
  - PYREXIA [None]
  - WHITE BLOOD CELL COUNT INCREASED [None]
